FAERS Safety Report 4459854-5 (Version None)
Quarter: 2004Q3

REPORT INFORMATION
  Report Type: 
  Country: None (occurrence: None)
  Receive Date: 20040928
  Receipt Date: 20040922
  Transmission Date: 20050211
  Serious: Yes (Hospitalization)
  Sender: FDA-Public Use
  Company Number: PHBS2004GB12635

PATIENT
  Age: 50 Year
  Sex: Male

DRUGS (4)
  1. OXCARBAZEPINE [Suspect]
     Indication: STATUS EPILEPTICUS
     Route: 065
  2. PHENYTOIN [Suspect]
     Indication: STATUS EPILEPTICUS
     Route: 065
  3. PHENOBARBITONE [Suspect]
     Indication: STATUS EPILEPTICUS
     Route: 065
  4. LAMOTRIGINE [Suspect]
     Indication: STATUS EPILEPTICUS
     Route: 065

REACTIONS (6)
  - ABASIA [None]
  - EXTENSOR PLANTAR RESPONSE [None]
  - OSTEOPOROSIS [None]
  - PARAPARESIS [None]
  - SPINAL COMPRESSION FRACTURE [None]
  - SURGERY [None]
